FAERS Safety Report 20305709 (Version 1)
Quarter: 2022Q1

REPORT INFORMATION
  Report Type: Spontaneous
  Country: US (occurrence: US)
  Receive Date: 20220106
  Receipt Date: 20220106
  Transmission Date: 20220423
  Serious: Yes (Death)
  Sender: FDA-Public Use
  Company Number: US-NOVARTISPH-NVSC2022US001438

PATIENT
  Age: 29 Year
  Sex: Female

DRUGS (4)
  1. RANITIDINE [Suspect]
     Active Substance: RANITIDINE
     Indication: Dyspepsia
     Dosage: 150 MG, PRN
     Route: 065
     Dates: start: 201001, end: 201701
  2. RANITIDINE [Suspect]
     Active Substance: RANITIDINE
     Indication: Abdominal discomfort
  3. RANITIDINE [Suspect]
     Active Substance: RANITIDINE
     Indication: Dyspepsia
     Dosage: 150 MG, PRN
     Route: 065
     Dates: start: 201001, end: 201701
  4. RANITIDINE [Suspect]
     Active Substance: RANITIDINE
     Indication: Abdominal discomfort

REACTIONS (3)
  - Breast cancer stage IV [Fatal]
  - Inappropriate schedule of product administration [Unknown]
  - Incorrect dose administered [Unknown]

NARRATIVE: CASE EVENT DATE: 20141201
